FAERS Safety Report 11752328 (Version 3)
Quarter: 2015Q4

REPORT INFORMATION
  Report Type: Spontaneous
  Country: US (occurrence: None)
  Receive Date: 20151118
  Receipt Date: 20151202
  Transmission Date: 20160304
  Serious: Yes (Other)
  Sender: FDA-Public Use
  Company Number: US-MDT-ADR-2015-02188

PATIENT
  Age: 58 Year
  Sex: Female

DRUGS (2)
  1. COMPOUNDED BACLOFEN INTRATHECAL 1111.1 MCG/ML [Suspect]
     Active Substance: BACLOFEN
     Indication: MUSCLE SPASTICITY
     Dosage: 600 MCG/DAY
  2. FENTANYL INTRATHECAL 1500 MCG/ML [Suspect]
     Active Substance: FENTANYL

REACTIONS (1)
  - No therapeutic response [None]
